FAERS Safety Report 22037332 (Version 1)
Quarter: 2023Q1

REPORT INFORMATION
  Report Type: Spontaneous
  Country: DE (occurrence: DE)
  Receive Date: 20230226
  Receipt Date: 20230226
  Transmission Date: 20230417
  Serious: Yes (Other)
  Sender: FDA-Public Use
  Company Number: DE-JNJFOC-20230250046

PATIENT
  Age: 72 Year
  Sex: Female
  Weight: 35 kg

DRUGS (2)
  1. SPRAVATO [Suspect]
     Active Substance: ESKETAMINE
     Indication: Depression
  2. TAVOR (LORAZEPAM) [Concomitant]
     Active Substance: LORAZEPAM
     Indication: Depression

REACTIONS (3)
  - Near death experience [Unknown]
  - Dissociation [Unknown]
  - Fear [Unknown]
